FAERS Safety Report 7724393-2 (Version None)
Quarter: 2011Q3

REPORT INFORMATION
  Report Type: 
  Country: None (occurrence: None)
  Receive Date: 20110901
  Receipt Date: 20110829
  Transmission Date: 20111222
  Serious: Yes (Death)
  Sender: FDA-Public Use
  Company Number: US-PFIZER INC-2011201743

PATIENT

DRUGS (1)
  1. ZITHROMAX [Suspect]

REACTIONS (1)
  - DEATH [None]
